FAERS Safety Report 9305587 (Version 1)
Quarter: 2013Q2

REPORT INFORMATION
  Report Type: Spontaneous
  Country: US (occurrence: US)
  Receive Date: 20130523
  Receipt Date: 20130523
  Transmission Date: 20140414
  Serious: Yes (Other)
  Sender: FDA-Public Use
  Company Number: US-ROCHE-1227867

PATIENT
  Age: 71 Year
  Sex: Female

DRUGS (3)
  1. BONIVA [Suspect]
     Indication: OSTEOPOROSIS
     Route: 065
  2. LEVOFLOXACIN [Concomitant]
     Indication: SINUSITIS
  3. MUCINEX DM [Concomitant]
     Indication: SINUSITIS

REACTIONS (2)
  - Ankle fracture [Unknown]
  - Sinusitis [Unknown]
